FAERS Safety Report 6226752-6 (Version None)
Quarter: 2009Q2

REPORT INFORMATION
  Report Type: 
  Country: None (occurrence: None)
  Receive Date: 20090612
  Receipt Date: 20090521
  Transmission Date: 20091009
  Serious: No
  Sender: FDA-Public Use
  Company Number: US-ABBOTT-09P-163-0575050-00

PATIENT
  Sex: Female
  Weight: 45.4 kg

DRUGS (11)
  1. HUMIRA [Suspect]
     Indication: DRUG USE FOR UNKNOWN INDICATION
     Dates: end: 20080101
  2. HUMIRA [Suspect]
     Dates: start: 20080101
  3. HUMIRA [Suspect]
     Dates: start: 20050101
  4. METHOTREXATE [Concomitant]
     Indication: DRUG USE FOR UNKNOWN INDICATION
  5. PREDNISONE [Concomitant]
     Indication: DRUG USE FOR UNKNOWN INDICATION
     Route: 048
  6. FOLIC ACID [Concomitant]
     Indication: DRUG USE FOR UNKNOWN INDICATION
  7. LEVOTHYROXINE SODIUM [Concomitant]
     Indication: DRUG USE FOR UNKNOWN INDICATION
  8. PLAQUENIL [Concomitant]
     Indication: DRUG USE FOR UNKNOWN INDICATION
     Dosage: 2 ONE DAY, 1 THE NEXT
  9. CELEBREX [Concomitant]
     Indication: DRUG USE FOR UNKNOWN INDICATION
  10. PRILOSEC [Concomitant]
     Indication: DRUG USE FOR UNKNOWN INDICATION
  11. MENEST [Concomitant]
     Indication: HORMONE REPLACEMENT THERAPY

REACTIONS (4)
  - ARTHRALGIA [None]
  - DRUG DOSE OMISSION [None]
  - DRUG INEFFECTIVE [None]
  - PHARYNGITIS STREPTOCOCCAL [None]
